FAERS Safety Report 14021353 (Version 4)
Quarter: 2017Q4

REPORT INFORMATION
  Report Type: Spontaneous
  Country: JP (occurrence: JP)
  Receive Date: 20170928
  Receipt Date: 20171220
  Transmission Date: 20180321
  Serious: Yes (Death, Hospitalization)
  Sender: FDA-Public Use
  Company Number: JP-ELI_LILLY_AND_COMPANY-JP201709007835

PATIENT
  Age: 58 Year
  Sex: Female
  Weight: 58 kg

DRUGS (6)
  1. ESOMEPRAZOLE MAGNESIUM. [Concomitant]
     Active Substance: ESOMEPRAZOLE MAGNESIUM
     Indication: GASTROOESOPHAGEAL REFLUX DISEASE
     Dosage: 20 MG, DAILY
     Route: 048
     Dates: start: 20150707, end: 201708
  2. FLUOROURACIL. [Concomitant]
     Active Substance: FLUOROURACIL
     Dosage: 3700 MG, OTHER
     Route: 042
     Dates: start: 20170425, end: 20170829
  3. LOXOPROFEN SODIUM DIHYDRATE [Concomitant]
     Active Substance: LOXOPROFEN SODIUM DIHYDRATE
     Indication: ABDOMINAL PAIN
     Dosage: 180 MG, DAILY
     Route: 048
     Dates: start: 20150722, end: 201708
  4. CYRAMZA [Suspect]
     Active Substance: RAMUCIRUMAB
     Indication: ADENOCARCINOMA OF COLON
     Dosage: 460 MG, OTHER
     Route: 041
     Dates: start: 20170425, end: 20170829
  5. FLUOROURACIL. [Concomitant]
     Active Substance: FLUOROURACIL
     Indication: ADENOCARCINOMA OF COLON
     Dosage: 610 MG, OTHER
     Route: 040
     Dates: start: 20170425, end: 20170829
  6. CALCIUM LEVOFOLINATE [Concomitant]
     Active Substance: LEVOLEUCOVORIN CALCIUM
     Indication: ADENOCARCINOMA OF COLON
     Dosage: 310 MG, OTHER
     Route: 042
     Dates: start: 20170425, end: 20170829

REACTIONS (6)
  - Intestinal perforation [Recovering/Resolving]
  - Disseminated intravascular coagulation [Recovered/Resolved]
  - Ileus [Not Recovered/Not Resolved]
  - Malignant ascites [Fatal]
  - Septic shock [Recovered/Resolved]
  - Acute kidney injury [Recovered/Resolved]

NARRATIVE: CASE EVENT DATE: 20170718
